FAERS Safety Report 21403147 (Version 1)
Quarter: 2022Q3

REPORT INFORMATION
  Report Type: Spontaneous
  Country: US (occurrence: None)
  Receive Date: 20220925
  Receipt Date: 20220925
  Transmission Date: 20221027
  Serious: Yes (Other)
  Sender: FDA-Public Use
  Company Number: None

PATIENT
  Age: 54 Year
  Sex: Female

DRUGS (1)
  1. SALICYLIC ACID [Suspect]
     Active Substance: SALICYLIC ACID
     Indication: Acrochordon excision
     Route: 061
     Dates: start: 20200210

REACTIONS (1)
  - Application site scar [None]

NARRATIVE: CASE EVENT DATE: 20200201
